FAERS Safety Report 10642428 (Version 1)
Quarter: 2014Q4

REPORT INFORMATION
  Report Type: Spontaneous
  Country: US (occurrence: None)
  Receive Date: 20141208
  Receipt Date: 20141208
  Transmission Date: 20150529
  Serious: Yes (Death)
  Sender: FDA-Public Use
  Company Number: None

PATIENT
  Age: 55 Year
  Sex: Female
  Weight: 71.22 kg

DRUGS (1)
  1. CITALOPRAM [Suspect]
     Active Substance: CITALOPRAM HYDROBROMIDE
     Indication: DEPRESSION
     Dosage: 1 PILL 20 MG PER DAY, ONCE DAILY, TAKEN BY MOUTH
     Route: 048
     Dates: start: 20120919, end: 20140919

REACTIONS (2)
  - Completed suicide [None]
  - Alcohol use [None]

NARRATIVE: CASE EVENT DATE: 20140823
